FAERS Safety Report 18373638 (Version 1)
Quarter: 2020Q4

REPORT INFORMATION
  Report Type: Spontaneous
  Country: US (occurrence: US)
  Receive Date: 20201013
  Receipt Date: 20201013
  Transmission Date: 20210114
  Serious: No
  Sender: FDA-Public Use
  Company Number: US-SA-2020SA281794

PATIENT

DRUGS (1)
  1. KEVZARA [Suspect]
     Active Substance: SARILUMAB
     Indication: RHEUMATOID ARTHRITIS
     Dosage: 200 MG, QOW
     Route: 058
     Dates: start: 20200519

REACTIONS (4)
  - Injection site mass [Unknown]
  - Injection site pruritus [Unknown]
  - Drug ineffective [Unknown]
  - Injection site erythema [Unknown]

NARRATIVE: CASE EVENT DATE: 2020
